FAERS Safety Report 4652591-3 (Version None)
Quarter: 2005Q2

REPORT INFORMATION
  Report Type: 
  Country: None (occurrence: None)
  Receive Date: 20050504
  Receipt Date: 20050425
  Transmission Date: 20051028
  Serious: Yes (Life-Threatening)
  Sender: FDA-Public Use
  Company Number: JP-JNJFOC-20050406902

PATIENT
  Age: 78 Year
  Sex: Male

DRUGS (2)
  1. RISPERIDONE [Suspect]
     Route: 049
     Dates: start: 20050330, end: 20050407
  2. HALOPERIDOL [Suspect]
     Indication: DRUG USE FOR UNKNOWN INDICATION

REACTIONS (1)
  - TORSADE DE POINTES [None]
